FAERS Safety Report 24909570 (Version 1)
Quarter: 2025Q1

REPORT INFORMATION
  Report Type: Spontaneous
  Country: FR (occurrence: FR)
  Receive Date: 20250131
  Receipt Date: 20250131
  Transmission Date: 20250408
  Serious: Yes (Hospitalization)
  Sender: ACCORD
  Company Number: None

PATIENT
  Age: 32 Year
  Sex: Male
  Weight: 74 kg

DRUGS (3)
  1. METHOTREXATE [Suspect]
     Active Substance: METHOTREXATE
     Indication: Sarcoidosis
     Dates: start: 202311, end: 20240920
  2. REMICADE [Suspect]
     Active Substance: INFLIXIMAB
     Indication: Sarcoidosis
     Dates: start: 202311, end: 20240910
  3. PREDNISONE [Suspect]
     Active Substance: PREDNISONE
     Indication: Sarcoidosis
     Dates: start: 202305, end: 20240930

REACTIONS (1)
  - White matter lesion [Not Recovered/Not Resolved]

NARRATIVE: CASE EVENT DATE: 20240603
